FAERS Safety Report 17788135 (Version 3)
Quarter: 2020Q2

REPORT INFORMATION
  Report Type: Spontaneous
  Country: ES (occurrence: ES)
  Receive Date: 20200514
  Receipt Date: 20200526
  Transmission Date: 20200714
  Serious: Yes (Other)
  Sender: FDA-Public Use
  Company Number: ES-VALIDUS PHARMACEUTICALS LLC-ES-2020VAL000371

PATIENT

DRUGS (2)
  1. SALINE                             /00075401/ [Concomitant]
     Active Substance: SODIUM CHLORIDE
     Indication: PRODUCT USED FOR UNKNOWN INDICATION
     Dosage: UNK
  2. FUROSEMIDE. [Suspect]
     Active Substance: FUROSEMIDE
     Indication: DIURETIC THERAPY
     Dosage: CONTINUOUS, FOR APPROXIMATELY FIVE DAYSDILUTION OF 625 MG OF FUROSEMIDE
     Route: 058
     Dates: start: 20161025, end: 20170130

REACTIONS (10)
  - Humerus fracture [Recovered/Resolved]
  - Infusion site induration [Recovered/Resolved]
  - Fall [Unknown]
  - Discomfort [Unknown]
  - Asthenia [Unknown]
  - Off label use [Unknown]
  - Performance status decreased [Unknown]
  - Condition aggravated [Unknown]
  - Infusion site erythema [Recovered/Resolved]
  - Cellulitis [Recovered/Resolved]

NARRATIVE: CASE EVENT DATE: 2016
